FAERS Safety Report 10091498 (Version 1)
Quarter: 2014Q2

REPORT INFORMATION
  Report Type: Report from Study
  Country: US (occurrence: US)
  Receive Date: 20140421
  Receipt Date: 20140421
  Transmission Date: 20141212
  Serious: Yes (Other)
  Sender: FDA-Public Use
  Company Number: US-ABBVIE-14P-163-1225523-00

PATIENT
  Age: 42 Year
  Sex: Female
  Weight: 136.2 kg

DRUGS (12)
  1. HUMIRA [Suspect]
     Indication: RHEUMATOID ARTHRITIS
     Dates: start: 201304, end: 201404
  2. HUMULIN R [Concomitant]
     Indication: DIABETES MELLITUS
  3. NOVOLIN N [Concomitant]
     Indication: DIABETES MELLITUS
  4. SYMLIN [Concomitant]
     Indication: DIABETES MELLITUS
  5. LISINOPRIL AND HYDROCHLOROTHIAZIDE [Concomitant]
     Indication: HYPERTENSION
  6. PRAVASTATIN [Concomitant]
     Indication: BLOOD CHOLESTEROL
  7. NEXIUM [Concomitant]
     Indication: GASTROOESOPHAGEAL REFLUX DISEASE
  8. LYRICA [Concomitant]
     Indication: FIBROMYALGIA
  9. SAVELLA [Concomitant]
     Indication: FIBROMYALGIA
  10. DAYPRO [Concomitant]
     Indication: FIBROMYALGIA
  11. LIDOCAINE [Concomitant]
     Indication: PAIN
  12. KEFLEX [Concomitant]
     Indication: PRODUCT USED FOR UNKNOWN INDICATION

REACTIONS (4)
  - Cartilage injury [Recovered/Resolved]
  - Cartilage injury [Recovering/Resolving]
  - Ligament sprain [Recovered/Resolved]
  - Ligament sprain [Recovered/Resolved]
